FAERS Safety Report 4760169-6 (Version None)
Quarter: 2005Q3

REPORT INFORMATION
  Report Type: 
  Country: None (occurrence: None)
  Receive Date: 20050831
  Receipt Date: 20050816
  Transmission Date: 20060218
  Serious: Yes (Hospitalization, Other)
  Sender: FDA-Public Use
  Company Number: US_990116743

PATIENT
  Age: 69 Year
  Sex: Female
  Weight: 68 kg

DRUGS (9)
  1. HUMULIN 70/30 [Suspect]
     Indication: DIABETES MELLITUS
     Dosage: 15 U/DAY
     Dates: start: 19980101, end: 20031001
  2. ILETIN [Suspect]
     Indication: DIABETES MELLITUS
  3. HUMULIN N [Suspect]
     Indication: DIABETES MELLITUS
  4. NPH ILETIN I (BEEF-PORK) [Suspect]
     Indication: DIABETES MELLITUS
     Dates: start: 19830101
  5. HUMULIN R [Suspect]
     Indication: DIABETES MELLITUS
     Dates: start: 20031101
  6. ILETIN II [Suspect]
  7. DILTIAZEM [Concomitant]
  8. DIGOXIN [Concomitant]
  9. LIPITOR [Concomitant]

REACTIONS (23)
  - ABASIA [None]
  - ATHEROSCLEROSIS [None]
  - BLOOD PRESSURE SYSTOLIC INCREASED [None]
  - CARDIAC FAILURE CONGESTIVE [None]
  - CATARACT [None]
  - DIABETES MELLITUS INADEQUATE CONTROL [None]
  - DIZZINESS [None]
  - DRUG EFFECT DECREASED [None]
  - DRUG INEFFECTIVE [None]
  - DYSSTASIA [None]
  - EYE DISORDER [None]
  - FEELING ABNORMAL [None]
  - HYPERGLYCAEMIA [None]
  - HYPOGLYCAEMIA [None]
  - MYOCARDIAL INFARCTION [None]
  - NASOPHARYNGITIS [None]
  - PHOTOSENSITIVITY REACTION [None]
  - POST PROCEDURAL COMPLICATION [None]
  - PRURITUS [None]
  - RASH [None]
  - SELF-MEDICATION [None]
  - VITREOUS FLOATERS [None]
  - WEIGHT INCREASED [None]
